FAERS Safety Report 22173772 (Version 2)
Quarter: 2023Q2

REPORT INFORMATION
  Report Type: Spontaneous
  Country: IT (occurrence: IT)
  Receive Date: 20230404
  Receipt Date: 20230410
  Transmission Date: 20230721
  Serious: Yes (Hospitalization, Other)
  Sender: FDA-Public Use
  Company Number: None

PATIENT
  Age: 54 Year
  Sex: Male
  Weight: 70 kg

DRUGS (4)
  1. IBUPROFEN [Suspect]
     Active Substance: IBUPROFEN
     Indication: Muscle contracture
     Dosage: 600 MILLIGRAM, FOR 5 DAYS 1/DAY, THEN INCREASE
     Route: 048
     Dates: start: 20230212, end: 20230222
  2. TACHIPIRINA [Suspect]
     Active Substance: ACETAMINOPHEN
     Indication: Muscle contracture
     Dosage: 2CP TOGETHER TO MAKE 1000MG,REPEATING 3 TIMES/DAY
     Route: 048
     Dates: start: 20230212, end: 20230217
  3. THIOCOLCHICOSIDE [Suspect]
     Active Substance: THIOCOLCHICOSIDE
     Indication: Muscle contracture
     Dosage: 8 MILLIGRAM, INCREASED TO 8MG 3 TIMES/DAY. PATIE
     Route: 048
     Dates: start: 20230218, end: 20230222
  4. THIOCOLCHICOSIDE [Suspect]
     Active Substance: THIOCOLCHICOSIDE
     Dosage: 4 MILLIGRAM QD 4 MILLIGRAM, FOR 5 DAYS MUSCORIL
     Route: 048
     Dates: start: 20230212, end: 20230217

REACTIONS (2)
  - Pain [Not Recovered/Not Resolved]
  - Treatment failure [Not Recovered/Not Resolved]

NARRATIVE: CASE EVENT DATE: 20230212
